FAERS Safety Report 14719492 (Version 4)
Quarter: 2020Q4

REPORT INFORMATION
  Report Type: Spontaneous
  Country: US (occurrence: US)
  Receive Date: 20180405
  Receipt Date: 20201230
  Transmission Date: 20210113
  Serious: No
  Sender: FDA-Public Use
  Company Number: US-PFIZER INC-2018134220

PATIENT
  Age: 75 Year
  Sex: Female

DRUGS (2)
  1. BOSULIF [Suspect]
     Active Substance: BOSUTINIB MONOHYDRATE
     Dosage: 500 MG
  2. BOSULIF [Suspect]
     Active Substance: BOSUTINIB MONOHYDRATE
     Dosage: 2500 MG, DAILY (STRENGTH: 500MG DAILY, DIRECTIONS SIG: 5 TABLETS DAILY)

REACTIONS (3)
  - Prescribed overdose [Unknown]
  - Product dispensing error [Unknown]
  - Laryngitis [Unknown]
